FAERS Safety Report 6495285-4 (Version None)
Quarter: 2009Q4

REPORT INFORMATION
  Report Type: 
  Country: None (occurrence: None)
  Receive Date: 20091214
  Receipt Date: 20090713
  Transmission Date: 20100525
  Serious: No
  Sender: FDA-Public Use
  Company Number: US-BRISTOL-MYERS SQUIBB COMPANY-14633911

PATIENT
  Age: 6 Year
  Sex: Male
  Weight: 35 kg

DRUGS (3)
  1. ABILIFY [Suspect]
     Indication: AUTISM
     Dosage: IN NOV06 INCREASED TO 12.5MG QD IN FEB09 DECREASED + THEN COMPLETELY STOPPED
     Route: 048
     Dates: start: 20060201, end: 20090501
  2. ALBUTEROL [Concomitant]
  3. CLARITIN [Concomitant]

REACTIONS (12)
  - AGGRESSION [None]
  - AGITATION [None]
  - CRYING [None]
  - DROOLING [None]
  - DYSKINESIA [None]
  - DYSTONIA [None]
  - EYE MOVEMENT DISORDER [None]
  - HALLUCINATION [None]
  - INCREASED APPETITE [None]
  - INSOMNIA [None]
  - MUSCLE SPASMS [None]
  - TOURETTE'S DISORDER [None]
